FAERS Safety Report 25949760 (Version 1)
Quarter: 2025Q4

REPORT INFORMATION
  Report Type: Spontaneous
  Country: US (occurrence: US)
  Receive Date: 20251022
  Receipt Date: 20251022
  Transmission Date: 20260118
  Serious: Yes (Hospitalization)
  Sender: GRIFOLS
  Company Number: US-IGSA-BIG0038941

PATIENT
  Sex: Female
  Weight: 53.061 kg

DRUGS (1)
  1. PROLASTIN-C LIQUID [Suspect]
     Active Substance: .ALPHA.1-PROTEINASE INHIBITOR HUMAN
     Indication: Alpha-1 antitrypsin deficiency
     Dosage: 3159 MILLIGRAM, Q.WK.
     Route: 042

REACTIONS (2)
  - Pneumonia bacterial [Unknown]
  - Intentional dose omission [Unknown]
